FAERS Safety Report 7970617-6 (Version None)
Quarter: 2011Q4

REPORT INFORMATION
  Report Type: 
  Country: None (occurrence: None)
  Receive Date: 20111212
  Receipt Date: 20111205
  Transmission Date: 20120403
  Serious: Yes (Other)
  Sender: FDA-Public Use
  Company Number: US-SANOFI-AVENTIS-2011SA079939

PATIENT
  Age: 49 Year
  Sex: Male

DRUGS (2)
  1. LOVENOX [Suspect]
     Route: 065
     Dates: start: 20100801
  2. LOVENOX [Suspect]
     Route: 065
     Dates: start: 20100801

REACTIONS (5)
  - GALLBLADDER DISORDER [None]
  - DYSPNOEA [None]
  - BACK PAIN [None]
  - CHEST PAIN [None]
  - FATIGUE [None]
